FAERS Safety Report 9717586 (Version 3)
Quarter: 2013Q4

REPORT INFORMATION
  Report Type: Spontaneous
  Country: DE (occurrence: DE)
  Receive Date: 20131127
  Receipt Date: 20131224
  Transmission Date: 20140711
  Serious: Yes (Hospitalization)
  Sender: FDA-Public Use
  Company Number: DE-AMGEN-DEUSP2013083655

PATIENT
  Sex: 0

DRUGS (8)
  1. NEULASTA [Suspect]
     Indication: PRODUCT USED FOR UNKNOWN INDICATION
     Dosage: 6 MG, SINGLE DOSE
     Route: 065
     Dates: start: 20130809, end: 20130809
  2. ADRIAMYCIN /00330901/ [Suspect]
     Indication: HODGKIN^S DISEASE STAGE IV
     Dosage: 35 MG/M2, UNK
     Route: 065
     Dates: start: 20130806
  3. BLEOMYCIN [Suspect]
     Indication: HODGKIN^S DISEASE STAGE IV
     Dosage: 10 MG/M2, UNK
     Route: 065
     Dates: start: 20130810
  4. PROCARBAZINE [Suspect]
     Indication: HODGKIN^S DISEASE STAGE IV
     Dosage: 100 MG/M2, UNK
     Route: 065
     Dates: start: 20130806
  5. VINCRISTINE [Suspect]
     Indication: HODGKIN^S DISEASE STAGE IV
     Dosage: 1.4 MG/M2, UNK
     Route: 065
     Dates: start: 20130806
  6. ETOPOSIDE [Suspect]
     Indication: HODGKIN^S DISEASE STAGE IV
     Dosage: 200 MG/M2, UNK
     Route: 065
     Dates: start: 20130806
  7. CYCLOPHOSPHAMIDE [Suspect]
     Indication: HODGKIN^S DISEASE STAGE IV
     Dosage: 1250 MG/M2, UNK
     Route: 065
     Dates: start: 20130806
  8. PREDNISONE [Suspect]
     Indication: HODGKIN^S DISEASE STAGE IV
     Dosage: 40 MG/M2, UNK
     Route: 065
     Dates: start: 20130806

REACTIONS (3)
  - Back pain [Recovered/Resolved]
  - Pain in extremity [Recovered/Resolved]
  - Arthralgia [Unknown]
